FAERS Safety Report 13766771 (Version 1)
Quarter: 2017Q3

REPORT INFORMATION
  Report Type: Spontaneous
  Country: US (occurrence: US)
  Receive Date: 20170718
  Receipt Date: 20170718
  Transmission Date: 20171127
  Serious: Yes (Hospitalization)
  Sender: FDA-Public Use
  Company Number: None

PATIENT
  Age: 52 Year
  Sex: Female
  Weight: 68.4 kg

DRUGS (1)
  1. BENICAR [Suspect]
     Active Substance: OLMESARTAN MEDOXOMIL
     Indication: BLOOD PRESSURE INCREASED
     Dates: start: 20141007, end: 20150709

REACTIONS (4)
  - Diarrhoea [None]
  - Acute kidney injury [None]
  - Hypotension [None]
  - Weight decreased [None]

NARRATIVE: CASE EVENT DATE: 20150709
